FAERS Safety Report 12839583 (Version 1)
Quarter: 2016Q4

REPORT INFORMATION
  Report Type: Spontaneous
  Country: US (occurrence: US)
  Receive Date: 20161011
  Receipt Date: 20161011
  Transmission Date: 20170207
  Serious: Yes (Other)
  Sender: FDA-Public Use
  Company Number: None

PATIENT
  Age: 61 Year
  Sex: Female
  Weight: 67.5 kg

DRUGS (14)
  1. E [Concomitant]
  2. MYRBETRIQ [Suspect]
     Active Substance: MIRABEGRON
     Indication: URINARY INCONTINENCE
     Dosage: OTHER DAILY ORAL
     Route: 048
     Dates: start: 20160920
  3. CALCIUM [Concomitant]
     Active Substance: CALCIUM
  4. CHROMIUM [Concomitant]
     Active Substance: CHROMIC CHLORIDE\CHROMIUM
  5. TAMULOSIN [Concomitant]
     Active Substance: TAMSULOSIN
  6. GLUCOSAMINE [Concomitant]
     Active Substance: GLUCOSAMINE
  7. NALTREXONE [Concomitant]
     Active Substance: NALTREXONE
  8. SELENIUM [Concomitant]
     Active Substance: SELENIUM
  9. B [Concomitant]
  10. GINKGO [Concomitant]
     Active Substance: GINKGO
  11. D [Concomitant]
  12. VITAMINS C [Concomitant]
  13. A [Concomitant]
  14. MAGNESIUM [Concomitant]
     Active Substance: MAGNESIUM

REACTIONS (7)
  - Swelling [None]
  - Food allergy [None]
  - Erythema [None]
  - Dyspnoea [None]
  - Swelling face [None]
  - Pruritus [None]
  - Palpitations [None]

NARRATIVE: CASE EVENT DATE: 20161010
